FAERS Safety Report 9670039 (Version 1)
Quarter: 2013Q4

REPORT INFORMATION
  Report Type: Spontaneous
  Country: GB (occurrence: GB)
  Receive Date: 20131105
  Receipt Date: 20131105
  Transmission Date: 20140711
  Serious: Yes (Other)
  Sender: FDA-Public Use
  Company Number: GB-ACTAVIS-2013-20105

PATIENT
  Age: 24 Year
  Sex: Female
  Weight: 52 kg

DRUGS (2)
  1. FLUOXETINE (UNKNOWN) [Suspect]
     Indication: PREMENSTRUAL DYSPHORIC DISORDER
     Dosage: 20 MG, DAILY
     Route: 048
     Dates: start: 20130429
  2. LANSOPRAZOLE [Concomitant]
     Indication: PRODUCT USED FOR UNKNOWN INDICATION
     Dosage: UNK
     Route: 065

REACTIONS (2)
  - Increased tendency to bruise [Not Recovered/Not Resolved]
  - Product quality issue [Unknown]
